FAERS Safety Report 7032701-3 (Version None)
Quarter: 2010Q4

REPORT INFORMATION
  Report Type: 
  Country: None (occurrence: None)
  Receive Date: 20101007
  Receipt Date: 20100929
  Transmission Date: 20110411
  Serious: Yes (Death, Other)
  Sender: FDA-Public Use
  Company Number: JP-JNJFOC-20100604742

PATIENT
  Age: 68 Year
  Sex: Female
  Weight: 43 kg

DRUGS (15)
  1. DOXORUBICIN HYDROCHLORIDE [Suspect]
     Indication: OVARIAN CANCER RECURRENT
     Dosage: CYCLE 5
     Route: 042
  2. DOXORUBICIN HYDROCHLORIDE [Suspect]
     Dosage: CYCLE 4
     Route: 042
  3. DOXORUBICIN HYDROCHLORIDE [Suspect]
     Dosage: CYCLE 3
     Route: 042
  4. DOXORUBICIN HYDROCHLORIDE [Suspect]
     Dosage: CYCLE 2
     Route: 042
  5. DOXORUBICIN HYDROCHLORIDE [Suspect]
     Dosage: CYCLE 1
     Route: 042
  6. DAI-KENCHU-TO [Concomitant]
     Indication: PROPHYLAXIS
     Route: 048
  7. PONTAL [Concomitant]
     Indication: PROPHYLAXIS
     Route: 048
  8. RANIMERCK [Concomitant]
     Indication: PROPHYLAXIS
     Route: 048
  9. HACHIAZULE [Concomitant]
     Indication: PROPHYLAXIS
     Route: 002
  10. RAMELTEON [Concomitant]
     Indication: PROPHYLAXIS
     Route: 048
  11. PRIMPERAN TAB [Concomitant]
     Indication: PROPHYLAXIS
     Route: 048
  12. BECLOMETASONE DIPROPIONATE [Concomitant]
     Indication: PROPHYLAXIS
     Route: 065
  13. DECADRON [Concomitant]
     Indication: PROPHYLAXIS
     Route: 042
  14. DECADRON [Concomitant]
     Route: 042
  15. RANITIDINE HYDROCHLORIDE [Concomitant]
     Indication: PROPHYLAXIS
     Route: 048

REACTIONS (4)
  - ANAEMIA [None]
  - DISEASE PROGRESSION [None]
  - HYPOALBUMINAEMIA [None]
  - RENAL FAILURE CHRONIC [None]
